FAERS Safety Report 9421930 (Version 3)
Quarter: 2013Q3

REPORT INFORMATION
  Report Type: Spontaneous
  Country: US (occurrence: US)
  Receive Date: 20130726
  Receipt Date: 20130826
  Transmission Date: 20140515
  Serious: No
  Sender: FDA-Public Use
  Company Number: US-PFIZER INC-2013217429

PATIENT
  Age: 58 Year
  Sex: Male

DRUGS (5)
  1. CELEBREX [Suspect]
     Dosage: (STRENGTH 200MG, 100 COUNT PER BOTTLE)
  2. RELPAX [Suspect]
     Dosage: (STRENGTH 40MG, X6X1 BLISTERS)
  3. NEURONTIN [Suspect]
     Dosage: (STRENGTH 800MG, X100 CT SCORED)
  4. DILANTIN [Suspect]
     Dosage: (STRENGTH 100MG, X100CT BOT PROCIB)
  5. VIAGRA [Suspect]
     Dosage: (STRENGTH 100MG)

REACTIONS (2)
  - Incorrect product storage [Unknown]
  - Memory impairment [Unknown]
